FAERS Safety Report 4750098-6 (Version None)
Quarter: 2005Q3

REPORT INFORMATION
  Report Type: 
  Country: None (occurrence: None)
  Receive Date: 20050822
  Receipt Date: 20050801
  Transmission Date: 20060218
  Serious: Yes (Hospitalization)
  Sender: FDA-Public Use
  Company Number: DSA_70689_2005

PATIENT
  Age: 3 Year
  Sex: Female

DRUGS (14)
  1. ORAMORPH SR [Suspect]
     Indication: MUCOSAL INFLAMMATION
     Dosage: 4 TAB PO
     Route: 048
     Dates: start: 20050614, end: 20050615
  2. ORAMORPH SR [Suspect]
     Indication: PAIN
     Dosage: 4 TAB PO
     Route: 048
     Dates: start: 20050614, end: 20050615
  3. ORAMORPH SR [Suspect]
     Indication: SWELLING FACE
     Dosage: 4 TAB PO
     Route: 048
     Dates: start: 20050614, end: 20050615
  4. MORPHINE [Suspect]
     Indication: MUCOSAL INFLAMMATION
     Dosage: 10 MG BID PO
     Route: 048
     Dates: start: 20050615
  5. MORPHINE [Suspect]
     Indication: PAIN
     Dosage: 10 MG BID PO
     Route: 048
     Dates: start: 20050615
  6. MORPHINE [Suspect]
     Indication: SWELLING FACE
     Dosage: 10 MG BID PO
     Route: 048
     Dates: start: 20050615
  7. AQUEOUS CREAM BP [Suspect]
     Dosage: DF TP
     Route: 061
  8. FLUCONAZOLE [Concomitant]
  9. SULFAMETHOXAZOLE + TRIMETHOPRIM [Concomitant]
  10. CHLORPHENIRAMINE MALEATE [Concomitant]
  11. CODEINE [Concomitant]
  12. MEROPENEM [Concomitant]
  13. OMEPRAZOLE [Concomitant]
  14. TEICOPLANIN [Concomitant]

REACTIONS (6)
  - ERYTHEMA [None]
  - OEDEMA [None]
  - PRURITUS [None]
  - RASH [None]
  - SKIN DISORDER [None]
  - SKIN EXFOLIATION [None]
